FAERS Safety Report 8908612 (Version 1)
Quarter: 2012Q4

REPORT INFORMATION
  Report Type: 
  Country: FR (occurrence: FR)
  Receive Date: 20121114
  Receipt Date: 20121114
  Transmission Date: 20130627
  Serious: Yes (Other)
  Sender: FDA-Public Use
  Company Number: PHHY2012FR104232

PATIENT
  Sex: Female
  Weight: 120 kg

DRUGS (7)
  1. RASILEZ [Suspect]
     Indication: HYPERTENSION
     Dosage: 150 mg, daily
     Route: 048
     Dates: start: 2009
  2. RASILEZ [Suspect]
     Dosage: 300 mg, daily
     Route: 048
     Dates: start: 201112
  3. LASILIX [Concomitant]
     Indication: HYPERTENSION
     Dates: start: 1998
  4. SEROPRAM [Concomitant]
  5. LEXOMIL [Concomitant]
  6. CITALOPRAM [Concomitant]
  7. DAFALGAN [Concomitant]

REACTIONS (1)
  - Cerebrovascular accident [Recovered/Resolved]
